FAERS Safety Report 16429846 (Version 6)
Quarter: 2019Q3

REPORT INFORMATION
  Report Type: Report from Study
  Country: US (occurrence: US)
  Receive Date: 20190614
  Receipt Date: 20190902
  Transmission Date: 20191004
  Serious: Yes (Hospitalization)
  Sender: FDA-Public Use
  Company Number: US-GILEAD-2019-0406427

PATIENT
  Age: 49 Year
  Sex: Female

DRUGS (4)
  1. XIFAXAN [Concomitant]
     Active Substance: RIFAXIMIN
  2. OMEPRAZOLE. [Concomitant]
     Active Substance: OMEPRAZOLE
  3. LACTULOSE. [Concomitant]
     Active Substance: LACTULOSE
  4. SOFOSBUVIR W/VELPATASVIR [Suspect]
     Active Substance: SOFOSBUVIR\VELPATASVIR
     Indication: CHRONIC HEPATITIS C
     Dosage: 1 DOSAGE FORM, QD
     Route: 048
     Dates: start: 20190403

REACTIONS (30)
  - Memory impairment [Unknown]
  - Thinking abnormal [Not Recovered/Not Resolved]
  - Dizziness [Not Recovered/Not Resolved]
  - Headache [Unknown]
  - Eye swelling [Not Recovered/Not Resolved]
  - Hepatic pain [Not Recovered/Not Resolved]
  - Dyspepsia [Not Recovered/Not Resolved]
  - Asthenia [Not Recovered/Not Resolved]
  - Haemorrhage [Unknown]
  - Full blood count decreased [Unknown]
  - Hypokinesia [Unknown]
  - Product dose omission [Unknown]
  - Neuralgia [Not Recovered/Not Resolved]
  - Blood iron decreased [Unknown]
  - Fatigue [Not Recovered/Not Resolved]
  - Product dose omission [Recovered/Resolved]
  - Feeling abnormal [Unknown]
  - Perihepatic discomfort [Not Recovered/Not Resolved]
  - Disturbance in attention [Unknown]
  - Abdominal pain [Unknown]
  - Food craving [Not Recovered/Not Resolved]
  - Chromaturia [Unknown]
  - Circumstance or information capable of leading to medication error [Not Recovered/Not Resolved]
  - Hunger [Not Recovered/Not Resolved]
  - Stress [Not Recovered/Not Resolved]
  - Alopecia [Not Recovered/Not Resolved]
  - Gastric dilatation [Unknown]
  - Constipation [Not Recovered/Not Resolved]
  - Pyrexia [Not Recovered/Not Resolved]
  - Insomnia [Not Recovered/Not Resolved]

NARRATIVE: CASE EVENT DATE: 20190403
